FAERS Safety Report 16475450 (Version 4)
Quarter: 2020Q2

REPORT INFORMATION
  Report Type: Report from Study
  Country: US (occurrence: US)
  Receive Date: 20190625
  Receipt Date: 20200602
  Transmission Date: 20200713
  Serious: Yes (Hospitalization, Other)
  Sender: FDA-Public Use
  Company Number: US-ASTELLAS-2019US010792

PATIENT
  Sex: Female

DRUGS (4)
  1. ABILIFY [Concomitant]
     Active Substance: ARIPIPRAZOLE
     Indication: PRODUCT USED FOR UNKNOWN INDICATION
     Dosage: UNK UNK, UNKNOWN FREQ.
     Route: 065
  2. ASP2215 [Suspect]
     Active Substance: GILTERITINIB
     Indication: ACUTE MYELOID LEUKAEMIA (IN REMISSION)
     Route: 048
     Dates: start: 20190213, end: 20190313
  3. ASP2215 [Suspect]
     Active Substance: GILTERITINIB
     Route: 048
  4. VENCLEXTA [Concomitant]
     Active Substance: VENETOCLAX
     Indication: ACUTE MYELOID LEUKAEMIA
     Route: 048
     Dates: start: 202001

REACTIONS (11)
  - Acute myeloid leukaemia recurrent [Unknown]
  - Gait inability [Unknown]
  - Platelet count decreased [Unknown]
  - Blood count abnormal [Unknown]
  - Venous occlusion [Unknown]
  - Asthenia [Unknown]
  - Dizziness [Unknown]
  - Localised infection [Unknown]
  - Lymphatic disorder [Unknown]
  - Fatigue [Unknown]
  - Weight increased [Unknown]
